FAERS Safety Report 6110312-1 (Version None)
Quarter: 2009Q1

REPORT INFORMATION
  Report Type: 
  Country: None (occurrence: None)
  Receive Date: 20090310
  Receipt Date: 20090226
  Transmission Date: 20090719
  Serious: Yes (Death, Life-Threatening, Hospitalization, Other)
  Sender: FDA-Public Use
  Company Number: MX-PFIZER INC-2009168452

PATIENT

DRUGS (19)
  1. ANIDULAFUNGIN [Suspect]
     Indication: SYSTEMIC CANDIDA
     Dosage: 200 MG, 1X/DAY
     Route: 042
     Dates: start: 20090205, end: 20090205
  2. ANIDULAFUNGIN [Suspect]
     Dosage: 100 MG, 1X/DAY
     Route: 042
     Dates: start: 20090206, end: 20090218
  3. LEVOTHYROXINE SODIUM [Concomitant]
     Dosage: UNK
     Route: 048
     Dates: start: 20090127, end: 20090220
  4. METRONIDAZOLE [Concomitant]
     Dosage: UNK
     Route: 042
     Dates: start: 20090115, end: 20090220
  5. TRAMADOL HYDROCHLORIDE [Concomitant]
     Dosage: UNK
     Route: 042
     Dates: start: 20090115, end: 20090220
  6. FUROSEMIDE [Concomitant]
     Dosage: UNK
     Route: 042
     Dates: start: 20090119, end: 20090220
  7. LOPERAMIDE HYDROCHLORIDE [Concomitant]
     Dosage: UNK
     Route: 048
     Dates: start: 20090123, end: 20090210
  8. PIPERACILLIN AND TAZOBACTAM [Concomitant]
     Route: 042
     Dates: start: 20090115, end: 20090207
  9. OMEPRAZOLE [Concomitant]
     Dosage: UNK
     Route: 042
     Dates: start: 20090116, end: 20090216
  10. INSULIN [Concomitant]
     Dosage: UNK
     Route: 042
     Dates: start: 20090117, end: 20090220
  11. COMBIVENT [Concomitant]
     Dosage: UNK
     Route: 055
     Dates: start: 20090206, end: 20090210
  12. CALCIUM GLUCONATE [Concomitant]
     Route: 042
     Dates: start: 20090127, end: 20090204
  13. SULFASALAZINE [Concomitant]
     Dosage: UNK
     Route: 048
     Dates: start: 20090204, end: 20090210
  14. ZINC [Concomitant]
     Dosage: UNK
     Route: 042
     Dates: start: 20090123, end: 20090218
  15. MEROPENEM [Concomitant]
     Dosage: UNK
     Route: 042
     Dates: start: 20090210
  16. AMIKACIN [Concomitant]
     Dosage: UNK
     Route: 042
     Dates: start: 20090210
  17. HYDROCORTISONE [Concomitant]
     Dosage: UNK
     Route: 042
     Dates: start: 20090210, end: 20090220
  18. PARACETAMOL [Concomitant]
     Dosage: UNK
     Route: 042
     Dates: start: 20090207
  19. NOREPINEPHRINE [Concomitant]
     Dosage: UNK
     Route: 042
     Dates: start: 20090219, end: 20090220

REACTIONS (2)
  - HYPERKALAEMIA [None]
  - SEPTIC SHOCK [None]
